FAERS Safety Report 11104296 (Version 1)
Quarter: 2015Q2

REPORT INFORMATION
  Report Type: Spontaneous
  Country: SE (occurrence: SE)
  Receive Date: 20150511
  Receipt Date: 20150511
  Transmission Date: 20150821
  Serious: Yes (Life-Threatening)
  Sender: FDA-Public Use
  Company Number: SE-ELI_LILLY_AND_COMPANY-SE201505000872

PATIENT
  Age: 65 Year
  Sex: Female
  Weight: 110 kg

DRUGS (6)
  1. INSUMAN [Concomitant]
     Active Substance: INSULIN HUMAN
     Dosage: UNK
  2. HUMULIN N [Suspect]
     Active Substance: INSULIN HUMAN
     Indication: PRODUCT USED FOR UNKNOWN INDICATION
     Dosage: UNK
     Route: 065
     Dates: start: 20150415
  3. NOZINAN                            /00038602/ [Concomitant]
     Active Substance: LEVOMEPROMAZINE
  4. CISORDINOL                         /00876703/ [Concomitant]
     Active Substance: ZUCLOPENTHIXOL
  5. LEVOTHYROXINE SODIUM. [Concomitant]
     Active Substance: LEVOTHYROXINE SODIUM
  6. INSUMAN [Concomitant]
     Active Substance: INSULIN HUMAN
     Dosage: UNK
     Dates: end: 20150415

REACTIONS (5)
  - Fatigue [Recovered/Resolved]
  - Hyperhidrosis [Recovered/Resolved]
  - Anxiety [Recovered/Resolved]
  - Hypersexuality [Recovered/Resolved]
  - Feeling abnormal [Recovered/Resolved]

NARRATIVE: CASE EVENT DATE: 20150417
